FAERS Safety Report 21609321 (Version 1)
Quarter: 2022Q4

REPORT INFORMATION
  Report Type: Spontaneous
  Country: JP (occurrence: JP)
  Receive Date: 20221117
  Receipt Date: 20221117
  Transmission Date: 20230113
  Serious: Yes (Other)
  Sender: FDA-Public Use
  Company Number: JP-OTSUKA-2022_051635

PATIENT
  Age: 16 Year
  Sex: Female

DRUGS (1)
  1. REXULTI [Suspect]
     Active Substance: BREXPIPRAZOLE
     Indication: Schizophrenia
     Dosage: UNK
     Route: 048
     Dates: start: 202211, end: 202211

REACTIONS (8)
  - Hallucination, auditory [Unknown]
  - Seizure [Unknown]
  - Hyperventilation [Unknown]
  - Eating disorder symptom [Unknown]
  - Drooling [Unknown]
  - Musculoskeletal stiffness [Unknown]
  - Somnolence [Unknown]
  - Product use issue [Unknown]
